FAERS Safety Report 6461859-X (Version None)
Quarter: 2009Q4

REPORT INFORMATION
  Report Type: 
  Country: None (occurrence: None)
  Receive Date: 20091130
  Receipt Date: 20091119
  Transmission Date: 20100525
  Serious: Yes (Other)
  Sender: FDA-Public Use
  Company Number: PHHY2008BR18372

PATIENT
  Age: 65 Year
  Sex: Male
  Weight: 90 kg

DRUGS (6)
  1. ZOMETA [Suspect]
     Indication: PROSTATE CANCER
     Dosage: 4 MG EVERY 28 DAYS FOR 3 MONTHS
     Dates: start: 20080814
  2. ZOMETA [Suspect]
     Indication: METASTASES TO BONE
  3. CASODEX [Concomitant]
     Indication: PROSTATIC SPECIFIC ANTIGEN INCREASED
     Dosage: 50 MG (3 TABLET DAILY)
     Route: 048
  4. CASODEX [Concomitant]
     Indication: PROSTATE CANCER
     Dosage: 2 TABLETS DAILY
     Route: 048
  5. ZOLADEX [Concomitant]
     Indication: PROSTATE CANCER
     Dosage: 3.6 MG EVERY 28 DAYS
     Route: 058
  6. HORMONES AND RELATED AGENTS [Concomitant]
     Indication: PROSTATIC SPECIFIC ANTIGEN INCREASED
     Dosage: 1 MG, QD

REACTIONS (30)
  - ANISOCYTOSIS [None]
  - BACK PAIN [None]
  - BLOOD URINE PRESENT [None]
  - BONE PAIN [None]
  - CHEST PAIN [None]
  - CHILLS [None]
  - CHROMATURIA [None]
  - DYSURIA [None]
  - EPISTAXIS [None]
  - FAECES PALE [None]
  - FEELING ABNORMAL [None]
  - LIMB INJURY [None]
  - LUNG NEOPLASM [None]
  - MUSCULOSKELETAL CHEST PAIN [None]
  - MYALGIA [None]
  - NASAL CONGESTION [None]
  - PAIN [None]
  - PAIN IN EXTREMITY [None]
  - PAIN IN JAW [None]
  - PARAESTHESIA ORAL [None]
  - PLATELET COUNT DECREASED [None]
  - POLLAKIURIA [None]
  - POLYDIPSIA [None]
  - PYREXIA [None]
  - RED BLOOD CELL COUNT DECREASED [None]
  - RENAL PAIN [None]
  - ROAD TRAFFIC ACCIDENT [None]
  - URINARY RETENTION [None]
  - WEIGHT DECREASED [None]
  - WHITE BLOOD CELL COUNT DECREASED [None]
